FAERS Safety Report 8916941 (Version 1)
Quarter: 2012Q4

REPORT INFORMATION
  Report Type: 
  Country: FR (occurrence: FR)
  Receive Date: 20121120
  Receipt Date: 20121120
  Transmission Date: 20130627
  Serious: Yes (Hospitalization)
  Sender: FDA-Public Use
  Company Number: FR-BRISTOL-MYERS SQUIBB COMPANY-17099243

PATIENT
  Sex: Female

DRUGS (1)
  1. APROVEL TABS [Suspect]
     Route: 065

REACTIONS (3)
  - Malaise [Recovered/Resolved]
  - Confusional state [Recovered/Resolved]
  - Medication error [Recovered/Resolved]
